FAERS Safety Report 21960349 (Version 2)
Quarter: 2023Q1

REPORT INFORMATION
  Report Type: Spontaneous
  Country: ES (occurrence: ES)
  Receive Date: 20230207
  Receipt Date: 20230208
  Transmission Date: 20230417
  Serious: Yes (Hospitalization, Other)
  Sender: FDA-Public Use
  Company Number: ES-ABBVIE-4297784

PATIENT

DRUGS (4)
  1. VENETOCLAX [Suspect]
     Active Substance: VENETOCLAX
     Indication: Acute myeloid leukaemia
     Dosage: (200-400 MG
     Route: 048
     Dates: start: 201903
  2. DECITABINE [Concomitant]
     Active Substance: DECITABINE
     Indication: Product used for unknown indication
     Route: 042
     Dates: start: 201903
  3. AZACITIDINE [Concomitant]
     Active Substance: AZACITIDINE
     Indication: Product used for unknown indication
     Route: 058
     Dates: start: 201903
  4. VIDAZA [Concomitant]
     Active Substance: AZACITIDINE
     Indication: Product used for unknown indication
     Route: 058
     Dates: start: 201903

REACTIONS (12)
  - Deep vein thrombosis [Unknown]
  - Thrombocytopenia [Unknown]
  - Bacterial infection [Unknown]
  - COVID-19 [Unknown]
  - Viral infection [Unknown]
  - Fungal infection [Unknown]
  - Sepsis [Unknown]
  - Anaemia [Unknown]
  - Cardiac disorder [Unknown]
  - Febrile neutropenia [Unknown]
  - Haemorrhage [Unknown]
  - Off label use [Unknown]
